FAERS Safety Report 6490366-3 (Version None)
Quarter: 2009Q4

REPORT INFORMATION
  Report Type: 
  Country: None (occurrence: None)
  Receive Date: 20091211
  Receipt Date: 20091202
  Transmission Date: 20100525
  Serious: Yes (Other)
  Sender: FDA-Public Use
  Company Number: BR-ABBOTT-07P-020-0415602-00

PATIENT
  Sex: Female
  Weight: 80 kg

DRUGS (16)
  1. HUMIRA [Suspect]
     Indication: RHEUMATOID ARTHRITIS
     Route: 058
     Dates: start: 20061101
  2. VENLAFAXINE HYDROCHLORIDE [Concomitant]
     Indication: DEPRESSION
  3. CAPTOPRIL [Concomitant]
     Indication: HYPERTENSION
  4. ATENOLOL [Concomitant]
     Indication: HYPERTENSION
  5. BROMAZEPAM [Concomitant]
     Indication: INSOMNIA
  6. OMEPRAZOLE [Concomitant]
     Indication: GASTRIC DISORDER
  7. METICORTEN [Concomitant]
     Indication: RHEUMATOID ARTHRITIS
  8. ARCOXIA [Concomitant]
     Indication: RHEUMATOID ARTHRITIS
  9. METHOTREXATE [Concomitant]
     Indication: RHEUMATOID ARTHRITIS
  10. TRAMADOL HCL [Concomitant]
     Indication: DRUG USE FOR UNKNOWN INDICATION
     Route: 042
  11. KETOPROFEN [Concomitant]
     Indication: DRUG USE FOR UNKNOWN INDICATION
     Route: 042
  12. CEPHALEXIN [Concomitant]
     Indication: DRUG USE FOR UNKNOWN INDICATION
  13. UNKNOWN ANTIBIOTICS [Concomitant]
     Indication: DRUG USE FOR UNKNOWN INDICATION
  14. HYDROCORTISONE [Concomitant]
     Indication: RHEUMATOID ARTHRITIS
     Route: 048
  15. VOLTAREN [Concomitant]
     Indication: RHEUMATOID ARTHRITIS
     Route: 048
     Dates: start: 20090801
  16. TANDRILAX [Concomitant]
     Indication: RHEUMATOID ARTHRITIS

REACTIONS (5)
  - ARTHRALGIA [None]
  - BONE FORMATION DECREASED [None]
  - DRUG INEFFECTIVE [None]
  - JOINT SWELLING [None]
  - OEDEMA PERIPHERAL [None]
